FAERS Safety Report 5304720-6 (Version None)
Quarter: 2007Q2

REPORT INFORMATION
  Report Type: 
  Country: None (occurrence: None)
  Receive Date: 20070423
  Receipt Date: 20070420
  Transmission Date: 20071010
  Serious: Yes (Other)
  Sender: FDA-Public Use
  Company Number: AUWYE508423APR07

PATIENT

DRUGS (1)
  1. TIGECYCLINE [Suspect]
     Dosage: UNKNOWN
     Route: 042

REACTIONS (1)
  - HEPATITIS [None]
